FAERS Safety Report 18416549 (Version 1)
Quarter: 2020Q4

REPORT INFORMATION
  Report Type: Spontaneous
  Country: US (occurrence: US)
  Receive Date: 20201022
  Receipt Date: 20201022
  Transmission Date: 20210114
  Serious: No
  Sender: FDA-Public Use
  Company Number: US-PFIZER INC-2020024492

PATIENT
  Age: 70 Year
  Sex: Female

DRUGS (1)
  1. TALZENNA [Suspect]
     Active Substance: TALAZOPARIB TOSYLATE
     Indication: BREAST CANCER FEMALE
     Dosage: 0.5 MG, 1X/DAY (0.25 MG TAKE 2 CAPSULES BY MOUTH ONE TIME DAILY)
     Route: 048

REACTIONS (1)
  - Neoplasm progression [Unknown]
